FAERS Safety Report 16896519 (Version 2)
Quarter: 2020Q2

REPORT INFORMATION
  Report Type: Spontaneous
  Country: US (occurrence: US)
  Receive Date: 20191008
  Receipt Date: 20200521
  Transmission Date: 20200713
  Serious: No
  Sender: FDA-Public Use
  Company Number: US-LEXICON PHARMACEUTICALS, INC-19-1606-00910

PATIENT
  Age: 50 Year
  Sex: Female

DRUGS (12)
  1. OCTREOTIDE ACETATE. [Concomitant]
     Active Substance: OCTREOTIDE ACETATE
  2. QSYMIA [Concomitant]
     Active Substance: PHENTERMINE HYDROCHLORIDE\TOPIRAMATE
  3. FENOFIBRATE. [Concomitant]
     Active Substance: FENOFIBRATE
  4. CARVEDILOL. [Concomitant]
     Active Substance: CARVEDILOL
  5. LORTAB [Concomitant]
     Active Substance: ACETAMINOPHEN\HYDROCODONE BITARTRATE
  6. TELOTRISTAT ETHYL [Suspect]
     Active Substance: TELOTRISTAT ETHYL
     Indication: CARCINOID TUMOUR
     Dates: start: 20180410
  7. CREON [Concomitant]
     Active Substance: PANCRELIPASE AMYLASE\PANCRELIPASE LIPASE\PANCRELIPASE PROTEASE
  8. FUROSEMIDE. [Concomitant]
     Active Substance: FUROSEMIDE
  9. VOLTAREN [Concomitant]
     Active Substance: DICLOFENAC SODIUM
  10. ARMOUR THYRO [Concomitant]
  11. DIAZEPAM. [Concomitant]
     Active Substance: DIAZEPAM
  12. IRBESARTAN. [Concomitant]
     Active Substance: IRBESARTAN

REACTIONS (3)
  - Feeding disorder [Unknown]
  - Nausea [Unknown]
  - Vomiting [Unknown]
